FAERS Safety Report 7771639-0 (Version None)
Quarter: 2011Q3

REPORT INFORMATION
  Report Type: 
  Country: None (occurrence: None)
  Receive Date: 20110922
  Receipt Date: 20100810
  Transmission Date: 20111222
  Serious: No
  Sender: FDA-Public Use
  Company Number: US-ASTRAZENECA-2008UW04664

PATIENT
  Age: 9407 Day
  Sex: Female
  Weight: 113.9 kg

DRUGS (16)
  1. LEXAPRO [Concomitant]
     Indication: DEPRESSION
     Dosage: 10 - 20 MG DAILY
     Dates: start: 20060109
  2. LEXAPRO [Concomitant]
     Indication: ANXIETY
     Dosage: 10 - 20 MG DAILY
     Dates: start: 20060109
  3. SEROQUEL [Suspect]
     Indication: DEPRESSION
     Route: 048
     Dates: start: 20050403, end: 20071018
  4. SEROQUEL [Suspect]
     Indication: BIPOLAR DISORDER
     Route: 048
     Dates: start: 20050403, end: 20071018
  5. SEROQUEL [Suspect]
     Dosage: 100 - 300 MG AT NIGHT
     Route: 048
     Dates: start: 20060109
  6. SEROQUEL [Suspect]
     Dosage: 100 - 300 MG AT NIGHT
     Route: 048
     Dates: start: 20060109
  7. GEODON [Concomitant]
     Dates: start: 20071017
  8. SEROQUEL [Suspect]
     Indication: SLEEP DISORDER
     Route: 048
     Dates: start: 20050403, end: 20071018
  9. SEROQUEL [Suspect]
     Route: 048
     Dates: start: 20051122, end: 20080802
  10. SEROQUEL [Suspect]
     Route: 048
     Dates: start: 20051122, end: 20080802
  11. SEROQUEL [Suspect]
     Dosage: 100 - 300 MG AT NIGHT
     Route: 048
     Dates: start: 20060109
  12. SEROQUEL [Suspect]
     Route: 048
     Dates: start: 20051122, end: 20080802
  13. XANAX [Concomitant]
     Indication: ANXIETY
     Dates: start: 20060109
  14. SEROQUEL [Suspect]
     Indication: SCHIZOPHRENIA
     Route: 048
     Dates: start: 20050403, end: 20071018
  15. SEROQUEL [Suspect]
     Route: 048
     Dates: start: 20051122, end: 20080802
  16. SEROQUEL [Suspect]
     Dosage: 100 - 300 MG AT NIGHT
     Route: 048
     Dates: start: 20060109

REACTIONS (4)
  - DIABETIC COMPLICATION [None]
  - OBESITY [None]
  - TYPE 2 DIABETES MELLITUS [None]
  - ADVERSE DRUG REACTION [None]
